FAERS Safety Report 23139181 (Version 3)
Quarter: 2024Q1

REPORT INFORMATION
  Report Type: Spontaneous
  Country: US (occurrence: US)
  Receive Date: 20231102
  Receipt Date: 20240105
  Transmission Date: 20240410
  Serious: No
  Sender: FDA-Public Use
  Company Number: US-PFIZER INC-PV202300178343

PATIENT
  Age: 80 Year
  Sex: Female
  Weight: 61.235 kg

DRUGS (2)
  1. PREMARIN [Suspect]
     Active Substance: ESTROGENS, CONJUGATED
     Indication: Atrophic vulvovaginitis
     Dosage: 0.625MG ONCE PM
     Dates: start: 2021
  2. PREMARIN [Suspect]
     Active Substance: ESTROGENS, CONJUGATED
     Indication: Prophylaxis

REACTIONS (2)
  - Visual impairment [Unknown]
  - Off label use [Unknown]
